FAERS Safety Report 7905742-9 (Version None)
Quarter: 2011Q4

REPORT INFORMATION
  Report Type: 
  Country: None (occurrence: None)
  Receive Date: 20111108
  Receipt Date: 20111024
  Transmission Date: 20120403
  Serious: Yes (Life-Threatening, Hospitalization, Other)
  Sender: FDA-Public Use
  Company Number: 2011MA015901

PATIENT
  Age: 49 Year
  Sex: Female

DRUGS (2)
  1. DILTIAZEM HYDROCHLORIDE [Suspect]
     Indication: OVERDOSE
  2. METOPROLOL SUCCINATE [Suspect]
     Indication: OVERDOSE

REACTIONS (17)
  - DRUG SCREEN POSITIVE [None]
  - BRADYCARDIA [None]
  - HYPOTENSION [None]
  - MENTAL STATUS CHANGES [None]
  - ACCIDENTAL EXPOSURE [None]
  - NODAL ARRHYTHMIA [None]
  - HYPOTHYROIDISM [None]
  - BLOOD GLUCOSE DECREASED [None]
  - BLOOD UREA INCREASED [None]
  - MYXOEDEMA [None]
  - TREATMENT FAILURE [None]
  - ATRIOVENTRICULAR BLOCK FIRST DEGREE [None]
  - HYPOTHERMIA [None]
  - MULTIPLE DRUG OVERDOSE [None]
  - OXYGEN SATURATION DECREASED [None]
  - LOSS OF CONSCIOUSNESS [None]
  - BLOOD SODIUM DECREASED [None]
